FAERS Safety Report 21398374 (Version 1)
Quarter: 2022Q3

REPORT INFORMATION
  Report Type: Spontaneous
  Country: CN (occurrence: None)
  Receive Date: 20220930
  Receipt Date: 20220930
  Transmission Date: 20221027
  Serious: Yes (Other)
  Sender: FDA-Public Use
  Company Number: 2022A331134

PATIENT
  Age: 72 Year
  Sex: Male

DRUGS (5)
  1. OSIMERTINIB [Suspect]
     Active Substance: OSIMERTINIB
     Indication: Lung adenocarcinoma
     Route: 048
     Dates: start: 20210513
  2. NIFEDIPINE [Concomitant]
     Active Substance: NIFEDIPINE
     Route: 065
  3. GASTROINTESTINAL THERAPEUTIC SYSTEM [Concomitant]
  4. METFORMIN [Concomitant]
     Active Substance: METFORMIN HYDROCHLORIDE
     Route: 065
  5. ACARBOSE [Concomitant]
     Active Substance: ACARBOSE
     Route: 065

REACTIONS (3)
  - Metastases to adrenals [Unknown]
  - Malignant neoplasm progression [Unknown]
  - Metastases to abdominal cavity [Unknown]
